FAERS Safety Report 5615324-X (Version None)
Quarter: 2008Q1

REPORT INFORMATION
  Report Type: 
  Country: None (occurrence: None)
  Receive Date: 20080204
  Receipt Date: 20080204
  Transmission Date: 20080703
  Serious: Yes (Hospitalization)
  Sender: FDA-Public Use
  Company Number: None

PATIENT
  Age: 47 Year
  Sex: Male
  Weight: 100 kg

DRUGS (1)
  1. LISINOPRIL AND HYDROCHLOROTHIAZIDE [Suspect]
     Indication: HYPERTENSION
     Dosage: 1TAB EVERY DAY PO
     Route: 048
     Dates: start: 20070625, end: 20080121

REACTIONS (8)
  - ACUTE PRERENAL FAILURE [None]
  - ANGIOEDEMA [None]
  - BRONCHITIS [None]
  - HYPERSENSITIVITY [None]
  - LUNG NEOPLASM [None]
  - RENAL PAIN [None]
  - STAPHYLOCOCCAL INFECTION [None]
  - URINARY TRACT INFECTION [None]
